FAERS Safety Report 24285712 (Version 1)
Quarter: 2024Q3

REPORT INFORMATION
  Report Type: Report from Study
  Country: BR (occurrence: BR)
  Receive Date: 20240905
  Receipt Date: 20240905
  Transmission Date: 20241016
  Serious: Yes (Death)
  Sender: CHIESI
  Company Number: BR-CHIESI-2024CHF05632

PATIENT
  Sex: Male

DRUGS (3)
  1. CUROSURF [Suspect]
     Active Substance: PORACTANT ALFA
     Indication: Neonatal respiratory distress syndrome
     Dosage: 200 MILLIGRAM/KILOGRAM
  2. CUROSURF [Suspect]
     Active Substance: PORACTANT ALFA
     Dosage: 200 MILLIGRAM/KILOGRAM
  3. OXYGEN [Concomitant]
     Active Substance: OXYGEN
     Indication: Product used for unknown indication
     Dosage: UNK

REACTIONS (3)
  - Neonatal respiratory failure [Fatal]
  - Prescribed overdose [Fatal]
  - Off label use [Recovered/Resolved]
